FAERS Safety Report 7682441-2 (Version None)
Quarter: 2011Q3

REPORT INFORMATION
  Report Type: 
  Country: None (occurrence: None)
  Receive Date: 20110808
  Receipt Date: 20110722
  Transmission Date: 20111222
  Serious: Yes (Other)
  Sender: FDA-Public Use
  Company Number: DSA_47245_2011

PATIENT
  Sex: Male

DRUGS (3)
  1. ENALAPRIL MALEATE [Suspect]
     Indication: HYPERTENSION
     Dosage: 10 MG QD, TRANSPLACENTAL
     Route: 064
  2. METHYLDOPA [Suspect]
     Indication: PRODUCT USED FOR UNKNOWN INDICATION
     Dosage: DF, TRANSPLACENTAL
     Route: 064
  3. PROPRANOLOL HYDROCHLORIDE [Concomitant]

REACTIONS (2)
  - CONGENITAL CYSTIC KIDNEY DISEASE [None]
  - MATERNAL DRUGS AFFECTING FOETUS [None]
